FAERS Safety Report 5654221-0 (Version None)
Quarter: 2008Q1

REPORT INFORMATION
  Report Type: 
  Country: None (occurrence: None)
  Receive Date: 20080229
  Receipt Date: 20080219
  Transmission Date: 20080703
  Serious: Yes (Other)
  Sender: FDA-Public Use
  Company Number: US-WYE-H02711908

PATIENT
  Age: 85 Year
  Sex: Female

DRUGS (16)
  1. CENTRUM SILVER (MULTIVITAMIN/MULTIMINERAL, TABLET) [Suspect]
     Indication: NUTRITIONAL SUPPORT
     Dosage: 1 TABLET 1X PER 1 DAY ORAL
     Route: 048
     Dates: start: 20030101
  2. DETROL [Concomitant]
  3. SYNTHROID [Concomitant]
  4. ACETYLSALICYLIC ACID SRT [Concomitant]
  5. ARICEPT [Concomitant]
  6. ROBITUSSIN COUGH DROPS (MENTHOL) [Concomitant]
  7. MAGNESIUM (MAGNESIUM) [Concomitant]
  8. FOLIC ACID [Concomitant]
  9. OMEGA 3 (FISH OIL) [Concomitant]
  10. CALCIUM (CALCIUM) [Concomitant]
  11. COD-LIVER (COD-LIVER OIL) [Concomitant]
  12. BIOTIN [Concomitant]
  13. B COMPLEX (NICOTINAMIDE/PYRIDOXINE HYDROCHLORIDE/RIBOFLAVIN/THIAMINE H [Concomitant]
  14. VITAMIN D [Concomitant]
  15. LOTREL [Concomitant]
  16. FERROUS SULFATE TAB [Concomitant]

REACTIONS (3)
  - BLOOD ARSENIC INCREASED [None]
  - ENERGY INCREASED [None]
  - THERAPEUTIC RESPONSE UNEXPECTED [None]
